FAERS Safety Report 6440612-7 (Version None)
Quarter: 2009Q4

REPORT INFORMATION
  Report Type: 
  Country: None (occurrence: None)
  Receive Date: 20091113
  Receipt Date: 20091029
  Transmission Date: 20100525
  Serious: Yes (Other)
  Sender: FDA-Public Use
  Company Number: JP-GENENTECH-294213

PATIENT
  Age: 69 Year
  Sex: Male

DRUGS (1)
  1. AVASTIN [Suspect]
     Indication: MACULAR OEDEMA
     Dosage: UNK
     Route: 031
     Dates: start: 20080307, end: 20080404

REACTIONS (1)
  - RETINAL VEIN OCCLUSION [None]
